FAERS Safety Report 16335264 (Version 1)
Quarter: 2019Q2

REPORT INFORMATION
  Report Type: Spontaneous
  Country: US (occurrence: US)
  Receive Date: 20190413
  Receipt Date: 20190413
  Transmission Date: 20190711
  Serious: Yes (Hospitalization)
  Sender: FDA-Public Use
  Company Number: None

PATIENT
  Age: 55 Year
  Sex: Male
  Weight: 71 kg

DRUGS (2)
  1. ETOPOSIDE (VP-16) [Suspect]
     Active Substance: ETOPOSIDE
     Dates: end: 20190329
  2. CYTARABINE. [Suspect]
     Active Substance: CYTARABINE
     Dates: end: 20190329

REACTIONS (5)
  - Escherichia infection [None]
  - Tachypnoea [None]
  - Sepsis [None]
  - Febrile neutropenia [None]
  - Septic shock [None]

NARRATIVE: CASE EVENT DATE: 20190405
